FAERS Safety Report 8774229 (Version 5)
Quarter: 2014Q2

REPORT INFORMATION
  Report Type: Report from Study
  Country: IT (occurrence: IT)
  Receive Date: 20120907
  Receipt Date: 20140610
  Transmission Date: 20141212
  Serious: Yes (Death, Other)
  Sender: FDA-Public Use
  Company Number: IT-CELGENEUS-083-21880-12083367

PATIENT
  Sex: 0

DRUGS (15)
  1. REVLIMID [Suspect]
     Indication: DIFFUSE LARGE B-CELL LYMPHOMA
     Dosage: 15 MILLIGRAM
     Route: 048
  2. REVLIMID [Suspect]
     Dosage: 5 MILLIGRAM
     Route: 048
  3. REVLIMID [Suspect]
     Dosage: 10 MILLIGRAM
     Route: 048
  4. REVLIMID [Suspect]
     Dosage: 20 MILLIGRAM
     Route: 048
  5. RITUXIMAB [Suspect]
     Indication: DIFFUSE LARGE B-CELL LYMPHOMA
     Dosage: 375 MILLIGRAM/SQ. METER
     Route: 041
  6. CYCLOPHOSPHAMIDE [Suspect]
     Indication: DIFFUSE LARGE B-CELL LYMPHOMA
     Dosage: 750 MILLIGRAM/SQ. METER
     Route: 041
  7. DOXORUBICIN [Suspect]
     Indication: DIFFUSE LARGE B-CELL LYMPHOMA
     Dosage: 50 MILLIGRAM/SQ. METER
     Route: 041
  8. ONCOVIN [Suspect]
     Indication: DIFFUSE LARGE B-CELL LYMPHOMA
     Dosage: 1.4 MILLIGRAM/SQ. METER
     Route: 041
  9. PREDNISONE [Suspect]
     Indication: DIFFUSE LARGE B-CELL LYMPHOMA
     Route: 048
  10. COTRIMOXAZOLE [Concomitant]
     Indication: PROPHYLAXIS
     Route: 065
  11. GRANULOCYTE COLONY-STIMULATING FACTOR NOS [Concomitant]
     Indication: PROPHYLAXIS
     Route: 065
  12. LMWH [Concomitant]
     Indication: DEEP VEIN THROMBOSIS
     Route: 065
  13. LAMIVUDINE [Concomitant]
     Indication: HEPATITIS B
     Route: 065
  14. METHOTREXATE [Concomitant]
     Indication: PROPHYLAXIS
     Route: 065
  15. PENTAMIDINE [Concomitant]
     Indication: PROPHYLAXIS
     Route: 065

REACTIONS (24)
  - Nephropathy toxic [Unknown]
  - Homicide [Fatal]
  - Cardiotoxicity [Unknown]
  - Sepsis [Fatal]
  - Cardiac failure [Fatal]
  - Neutropenia [Unknown]
  - Thrombocytopenia [Unknown]
  - Deep vein thrombosis [Unknown]
  - Febrile neutropenia [Unknown]
  - Leukopenia [Unknown]
  - Anaemia [Unknown]
  - Febrile neutropenia [Unknown]
  - No therapeutic response [Unknown]
  - Rash [Unknown]
  - Diarrhoea [Unknown]
  - Disease progression [Unknown]
  - Infection [Unknown]
  - Fatigue [Unknown]
  - Treatment noncompliance [Unknown]
  - Neurological symptom [Unknown]
  - Colitis [Unknown]
  - Mucosal inflammation [Unknown]
  - Constipation [Unknown]
  - Liver function test abnormal [Unknown]
